FAERS Safety Report 11493486 (Version 1)
Quarter: 2015Q3

REPORT INFORMATION
  Report Type: Spontaneous
  Country: US (occurrence: US)
  Receive Date: 20150911
  Receipt Date: 20150911
  Transmission Date: 20151125
  Serious: No
  Sender: FDA-Public Use
  Company Number: US-ROCHE-1021575

PATIENT
  Sex: Male

DRUGS (10)
  1. RIBAVIRIN. [Suspect]
     Active Substance: RIBAVIRIN
     Indication: CHRONIC HEPATITIS C
     Dosage: SECOND COURSE
     Route: 065
     Dates: start: 20111001
  2. XANAX [Concomitant]
     Active Substance: ALPRAZOLAM
  3. OXYCONTIN [Concomitant]
     Active Substance: OXYCODONE HYDROCHLORIDE
  4. PEGASYS [Suspect]
     Active Substance: PEGINTERFERON ALFA-2A
     Indication: CHRONIC HEPATITIS C
     Route: 065
     Dates: start: 20111001
  5. PEGASYS [Suspect]
     Active Substance: PEGINTERFERON ALFA-2A
     Route: 065
     Dates: start: 20120107
  6. PEGASYS [Suspect]
     Active Substance: PEGINTERFERON ALFA-2A
     Route: 065
     Dates: start: 20120107
  7. RIBAVIRIN. [Suspect]
     Active Substance: RIBAVIRIN
     Dosage: THIRD COURSE
     Route: 048
     Dates: start: 20120107
  8. RIBAVIRIN. [Suspect]
     Active Substance: RIBAVIRIN
     Dosage: FIRST TREATMENT.
     Route: 065
     Dates: start: 1990
  9. TELAPREVIR [Suspect]
     Active Substance: TELAPREVIR
     Indication: CHRONIC HEPATITIS C
     Route: 065
     Dates: start: 20111001
  10. KLONOPIN [Concomitant]
     Active Substance: CLONAZEPAM

REACTIONS (3)
  - Hepatic enzyme increased [Unknown]
  - Hallucination, visual [Unknown]
  - Mental disorder [Unknown]
